FAERS Safety Report 8218298-0 (Version None)
Quarter: 2012Q1

REPORT INFORMATION
  Report Type: 
  Country: None (occurrence: None)
  Receive Date: 20120319
  Receipt Date: 20110509
  Transmission Date: 20120608
  Serious: Yes (Hospitalization, Disabling)
  Sender: FDA-Public Use
  Company Number: IT-CELGENEUS-083-21880-12011117

PATIENT

DRUGS (4)
  1. REVLIMID [Suspect]
     Indication: MULTIPLE MYELOMA
     Dosage: 5 MILLIGRAM
     Route: 048
     Dates: start: 20090803, end: 20110127
  2. FUROSEMIDE [Concomitant]
     Route: 048
  3. DEXAMETHASONE [Concomitant]
     Route: 048
     Dates: start: 20090803, end: 20110127
  4. ENOXAPARIN SODIUM [Concomitant]
     Route: 058
     Dates: start: 20090803, end: 20110127

REACTIONS (1)
  - PERIPHERAL EMBOLISM [None]
